FAERS Safety Report 11690070 (Version 1)
Quarter: 2015Q4

REPORT INFORMATION
  Report Type: Spontaneous
  Country: US (occurrence: US)
  Receive Date: 20151102
  Receipt Date: 20151102
  Transmission Date: 20160304
  Serious: No
  Sender: FDA-Public Use
  Company Number: US-WATSON-2015-17690

PATIENT
  Age: 87 Year
  Sex: Male

DRUGS (4)
  1. RAPAFLO [Suspect]
     Active Substance: SILODOSIN
     Indication: URINE FLOW DECREASED
     Dosage: 8 MG, 1 DAILY AT MEALTIME
     Route: 048
  2. RAPAFLO [Suspect]
     Active Substance: SILODOSIN
     Indication: URINARY TRACT DISORDER
  3. REMICADE [Suspect]
     Active Substance: INFLIXIMAB
     Indication: RHEUMATIC DISORDER
     Dosage: ONCE A MONTH FOR TEN YEARS
     Route: 042
     Dates: start: 2005
  4. ASPIRIN. [Concomitant]
     Active Substance: ASPIRIN
     Indication: PRODUCT USED FOR UNKNOWN INDICATION
     Dosage: HALF TAB DAILY
     Route: 065

REACTIONS (2)
  - Urine flow decreased [Not Recovered/Not Resolved]
  - Paraesthesia [Not Recovered/Not Resolved]

NARRATIVE: CASE EVENT DATE: 201506
